FAERS Safety Report 14948199 (Version 2)
Quarter: 2023Q2

REPORT INFORMATION
  Report Type: Report from Study
  Country: DE (occurrence: None)
  Receive Date: 20180529
  Receipt Date: 20230404
  Transmission Date: 20230722
  Serious: Yes (Life-Threatening, Other)
  Sender: FDA-Public Use
  Company Number: 2018SE67640

PATIENT
  Sex: Male

DRUGS (4)
  1. GEFITINIB [Suspect]
     Active Substance: GEFITINIB
     Indication: Synovial sarcoma
     Dosage: 250.0MG UNKNOWN
     Route: 048
  2. PONATINIB [Suspect]
     Active Substance: PONATINIB
     Indication: Synovial sarcoma
     Dosage: 30.0MG UNKNOWN
     Route: 048
  3. ETOPOSIDE [Suspect]
     Active Substance: ETOPOSIDE
     Indication: Synovial sarcoma
     Dosage: 1.0DF UNKNOWN
     Route: 048
  4. GEMCITABINE [Suspect]
     Active Substance: GEMCITABINE
     Indication: Synovial sarcoma
     Dosage: 800.0MG/M2 UNKNOWN
     Route: 042

REACTIONS (6)
  - Neutropenia [Unknown]
  - Thrombocytopenia [Unknown]
  - Lymphopenia [Unknown]
  - Anaemia [Unknown]
  - Off label use [Unknown]
  - Product use in unapproved indication [Unknown]
